FAERS Safety Report 11060603 (Version 1)
Quarter: 2015Q2

REPORT INFORMATION
  Report Type: Spontaneous
  Country: SE (occurrence: SE)
  Receive Date: 20150423
  Receipt Date: 20150423
  Transmission Date: 20150821
  Serious: Yes (Hospitalization)
  Sender: FDA-Public Use
  Company Number: SE-TEVA-557007ISR

PATIENT
  Age: 55 Year
  Sex: Female

DRUGS (1)
  1. ESOMEPRAZOLE 40 MILLIGRAM ENTEROTABLETTER [Suspect]
     Active Substance: ESOMEPRAZOLE

REACTIONS (3)
  - Palpitations [Not Recovered/Not Resolved]
  - Anxiety [Not Recovered/Not Resolved]
  - Blood pressure increased [Not Recovered/Not Resolved]
